FAERS Safety Report 12904700 (Version 1)
Quarter: 2016Q4

REPORT INFORMATION
  Report Type: Spontaneous
  Country: None (occurrence: US)
  Receive Date: 20161102
  Receipt Date: 20161102
  Transmission Date: 20170207
  Serious: Yes (Other)
  Sender: FDA-Public Use
  Company Number: US-INTERCEPT PHARMACEUTICALS, INC.-1059172

PATIENT
  Age: 41 Year
  Sex: Female

DRUGS (5)
  1. OCALIVA [Suspect]
     Active Substance: OBETICHOLIC ACID
     Route: 048
     Dates: start: 20160818, end: 20161017
  2. XANAX [Concomitant]
     Active Substance: ALPRAZOLAM
  3. KLONOPIN [Concomitant]
     Active Substance: CLONAZEPAM
  4. URSO [Concomitant]
     Active Substance: URSODIOL
     Dates: end: 20160818
  5. URSO [Concomitant]
     Active Substance: URSODIOL
     Dates: start: 20161017

REACTIONS (7)
  - Pyrexia [Recovering/Resolving]
  - Alanine aminotransferase increased [Recovering/Resolving]
  - Asthenia [Recovering/Resolving]
  - Pruritus [Recovering/Resolving]
  - Aspartate aminotransferase increased [Recovering/Resolving]
  - Blood alkaline phosphatase increased [Recovering/Resolving]
  - Blood bilirubin increased [Recovering/Resolving]

NARRATIVE: CASE EVENT DATE: 2016
